FAERS Safety Report 6185670-2 (Version None)
Quarter: 2009Q2

REPORT INFORMATION
  Report Type: 
  Country: None (occurrence: None)
  Receive Date: 20090511
  Receipt Date: 20090508
  Transmission Date: 20091009
  Serious: Yes (Death)
  Sender: FDA-Public Use
  Company Number: PHHY2009JP17684

PATIENT
  Age: 61 Year
  Sex: Male

DRUGS (1)
  1. DIOVAN T30230+TAB+HY [Suspect]
     Route: 048

REACTIONS (1)
  - BRAIN STEM HAEMORRHAGE [None]
